FAERS Safety Report 4976971-1 (Version None)
Quarter: 2006Q2

REPORT INFORMATION
  Report Type: 
  Country: None (occurrence: None)
  Receive Date: 20060413
  Receipt Date: 20060403
  Transmission Date: 20061013
  Serious: Yes (Hospitalization, Other)
  Sender: FDA-Public Use
  Company Number: HQWYE815704AUG04

PATIENT
  Age: 67 Year
  Sex: Female
  Weight: 67.19 kg

DRUGS (3)
  1. PREMPRO [Suspect]
  2. PREMARIN [Suspect]
  3. PROVERA [Suspect]

REACTIONS (3)
  - BREAST CANCER FEMALE [None]
  - BREAST CANCER METASTATIC [None]
  - DEPRESSION [None]
